FAERS Safety Report 8366050-8 (Version None)
Quarter: 2012Q2

REPORT INFORMATION
  Report Type: 
  Country: None (occurrence: None)
  Receive Date: 20120516
  Receipt Date: 20120516
  Transmission Date: 20120825
  Serious: Yes (Other)
  Sender: FDA-Public Use
  Company Number: None

PATIENT
  Age: 54 Year
  Sex: Female
  Weight: 52.1637 kg

DRUGS (1)
  1. FOSAMAX [Suspect]
     Indication: OSTEOPOROSIS
     Dosage: ONCE WEEKLY FOR 3 MONTHS
     Dates: start: 20111001, end: 20120110

REACTIONS (3)
  - BREAST MASS [None]
  - BONE DISORDER [None]
  - GASTROOESOPHAGEAL REFLUX DISEASE [None]
